FAERS Safety Report 4456210-0 (Version None)
Quarter: 2004Q3

REPORT INFORMATION
  Report Type: 
  Country: None (occurrence: None)
  Receive Date: 20040920
  Receipt Date: 20040907
  Transmission Date: 20050211
  Serious: Yes (Hospitalization)
  Sender: FDA-Public Use
  Company Number: 2004232908BE

PATIENT
  Age: 75 Year
  Sex: Female

DRUGS (1)
  1. AROMASIN [Suspect]
     Indication: BREAST CANCER RECURRENT
     Dosage: 25 MG, QD, ORAL
     Route: 048
     Dates: start: 20030801, end: 20040701

REACTIONS (4)
  - FATIGUE [None]
  - INFLAMMATION [None]
  - PLEURAL EFFUSION [None]
  - VERTIGO [None]
